FAERS Safety Report 13608528 (Version 1)
Quarter: 2017Q2

REPORT INFORMATION
  Report Type: Spontaneous
  Country: FR (occurrence: FR)
  Receive Date: 20170602
  Receipt Date: 20170602
  Transmission Date: 20170830
  Serious: Yes (Hospitalization)
  Sender: FDA-Public Use
  Company Number: FR-PFM-2017-04085

PATIENT
  Age: 76 Year
  Sex: Female

DRUGS (1)
  1. NAVELBINE [Suspect]
     Active Substance: VINORELBINE TARTRATE
     Indication: CERVIX CARCINOMA
     Dosage: 90 MG AT D1, D8 AND D15
     Route: 048
     Dates: start: 20170310, end: 20170420

REACTIONS (5)
  - Lipase increased [Recovering/Resolving]
  - Abdominal pain upper [Unknown]
  - Gastrointestinal motility disorder [Unknown]
  - Off label use [Unknown]
  - Product use in unapproved indication [Unknown]

NARRATIVE: CASE EVENT DATE: 20170410
